FAERS Safety Report 4963631-6 (Version None)
Quarter: 2006Q1

REPORT INFORMATION
  Report Type: 
  Country: None (occurrence: None)
  Receive Date: 20060201
  Receipt Date: 20051104
  Transmission Date: 20060701
  Serious: No
  Sender: FDA-Public Use
  Company Number: 2005PV004681

PATIENT
  Age: 82 Year
  Sex: Female
  Weight: 107.0489 kg

DRUGS (4)
  1. BYETTA [Suspect]
     Indication: DIABETES MELLITUS NON-INSULIN-DEPENDENT
     Dosage: 5 MCG; BID; SC
     Route: 058
     Dates: start: 20051026
  2. GLUCOTROL [Concomitant]
  3. COUMADIN [Concomitant]
  4. GLUCOTROL [Concomitant]

REACTIONS (3)
  - BLOOD GLUCOSE FLUCTUATION [None]
  - EARLY SATIETY [None]
  - INJECTION SITE BRUISING [None]
